FAERS Safety Report 7526185-6 (Version None)
Quarter: 2011Q2

REPORT INFORMATION
  Report Type: 
  Country: None (occurrence: None)
  Receive Date: 20110606
  Receipt Date: 20100715
  Transmission Date: 20111010
  Serious: No
  Sender: FDA-Public Use
  Company Number: US-BRISTOL-MYERS SQUIBB COMPANY-14754568

PATIENT
  Age: 57 Year
  Sex: Male

DRUGS (3)
  1. REYATAZ [Suspect]
     Indication: HIV INFECTION
     Route: 048
     Dates: start: 20080301
  2. SUSTIVA [Suspect]
     Route: 048
  3. RALTEGRAVIR [Suspect]
     Dosage: TABS
     Route: 048

REACTIONS (1)
  - NEPHROLITHIASIS [None]
